FAERS Safety Report 7815806-6 (Version None)
Quarter: 2011Q4

REPORT INFORMATION
  Report Type: 
  Country: None (occurrence: None)
  Receive Date: 20111014
  Receipt Date: 20110929
  Transmission Date: 20120403
  Serious: Yes (Other)
  Sender: FDA-Public Use
  Company Number: US-ROCHE-1002374

PATIENT
  Sex: Female

DRUGS (4)
  1. SOTRET [Suspect]
     Indication: ACNE
     Dates: start: 20070101, end: 20080501
  2. AMNESTEEM [Suspect]
     Indication: ACNE
     Dates: start: 20070101, end: 20080501
  3. ACCUTANE [Suspect]
     Indication: PRODUCT USED FOR UNKNOWN INDICATION
     Dates: start: 20070101, end: 20080501
  4. CLARAVIS [Suspect]
     Indication: ACNE
     Dates: start: 20070101, end: 20080501

REACTIONS (4)
  - IRRITABLE BOWEL SYNDROME [None]
  - INFLAMMATORY BOWEL DISEASE [None]
  - INJURY [None]
  - ANXIETY [None]
